FAERS Safety Report 5222343-4 (Version None)
Quarter: 2007Q1

REPORT INFORMATION
  Report Type: 
  Country: None (occurrence: None)
  Receive Date: 20070124
  Receipt Date: 20070116
  Transmission Date: 20070707
  Serious: Yes (Other)
  Sender: FDA-Public Use
  Company Number: 232418

PATIENT
  Sex: Female

DRUGS (1)
  1. HERCEPTIN (TRASTUZUMAB) PWDR + SOLVENTM INFUSION SOLN, 440MG [Suspect]
     Indication: DRUG USE FOR UNKNOWN INDICATION

REACTIONS (2)
  - FIBROMYALGIA [None]
  - SERUM SICKNESS [None]
